FAERS Safety Report 25801074 (Version 1)
Quarter: 2025Q3

REPORT INFORMATION
  Report Type: Spontaneous
  Country: US (occurrence: US)
  Receive Date: 20250915
  Receipt Date: 20250915
  Transmission Date: 20251021
  Serious: No
  Sender: BIOCON
  Company Number: US-MIMS-BCONMC-12179

PATIENT

DRUGS (5)
  1. SEMGLEE (INSULIN GLARGINE-YFGN) [Suspect]
     Active Substance: INSULIN GLARGINE-YFGN
     Indication: Type 2 diabetes mellitus
     Route: 058
  2. HUMALOG [Concomitant]
     Active Substance: INSULIN LISPRO
     Indication: Product used for unknown indication
     Route: 065
  3. ASPIRIN [Concomitant]
     Active Substance: ASPIRIN
     Indication: Product used for unknown indication
     Route: 065
  4. PREDNISOLONE [Concomitant]
     Active Substance: PREDNISOLONE
     Indication: Product used for unknown indication
     Route: 065
  5. HUMALOG KWIKPEN [Concomitant]
     Active Substance: INSULIN LISPRO
     Indication: Product used for unknown indication
     Route: 065

REACTIONS (9)
  - Muscle rigidity [Unknown]
  - Gait disturbance [Unknown]
  - Hypoaesthesia [Unknown]
  - Tachycardia [Unknown]
  - Arthralgia [Unknown]
  - Back pain [Unknown]
  - Myalgia [Unknown]
  - Injection site pain [Unknown]
  - Drug ineffective [Unknown]
